FAERS Safety Report 11146796 (Version 1)
Quarter: 2015Q2

REPORT INFORMATION
  Report Type: Spontaneous
  Country: SE (occurrence: SE)
  Receive Date: 20150528
  Receipt Date: 20150528
  Transmission Date: 20150821
  Serious: Yes (Other)
  Sender: FDA-Public Use
  Company Number: SE-PFIZER INC-2015177953

PATIENT
  Age: 28 Year
  Sex: Female

DRUGS (2)
  1. EFEXOR DEPOT [Suspect]
     Active Substance: VENLAFAXINE HYDROCHLORIDE
     Indication: DEPRESSION
     Dosage: 37.5 MG, UNK
     Dates: start: 2005
  2. EFEXOR DEPOT [Suspect]
     Active Substance: VENLAFAXINE HYDROCHLORIDE
     Indication: ANXIETY
     Dosage: 150 MG, UNK
     Dates: end: 201408

REACTIONS (14)
  - Abnormal dreams [Recovered/Resolved]
  - Social phobia [Recovered/Resolved]
  - Fatigue [Recovered/Resolved]
  - Phobia [Recovered/Resolved]
  - Disease progression [Recovered/Resolved]
  - Drug withdrawal syndrome [Recovered/Resolved]
  - Libido decreased [Recovered/Resolved]
  - Musculoskeletal stiffness [Recovered/Resolved]
  - Depression [Recovered/Resolved]
  - Nausea [Recovered/Resolved]
  - Confusional state [Recovered/Resolved]
  - Panic attack [Recovered/Resolved]
  - Dependent personality disorder [Recovered/Resolved]
  - Crying [Recovered/Resolved]

NARRATIVE: CASE EVENT DATE: 2006
